FAERS Safety Report 6384318-1 (Version None)
Quarter: 2009Q4

REPORT INFORMATION
  Report Type: 
  Country: None (occurrence: None)
  Receive Date: 20091001
  Receipt Date: 20090928
  Transmission Date: 20100525
  Serious: Yes (Hospitalization)
  Sender: FDA-Public Use
  Company Number: FR-BRISTOL-MYERS SQUIBB COMPANY-14744700

PATIENT
  Age: 82 Year
  Sex: Female

DRUGS (5)
  1. IRBESARTAN AND HYDROCHLOROTHIAZIDE [Suspect]
     Indication: HYPERTENSION
     Dosage: 1DF =300 MG/12.5MG
     Route: 048
     Dates: start: 20090601, end: 20090728
  2. APROVEL [Suspect]
     Dates: end: 20090626
  3. NEXIUM [Suspect]
     Indication: ABDOMINAL PAIN UPPER
     Dosage: TABS DOSE INCREASED TO 40 MG/ DAY
     Route: 048
     Dates: start: 20081201, end: 20090721
  4. EURELIX [Suspect]
     Dates: end: 20090626
  5. MODOPAR [Concomitant]

REACTIONS (3)
  - CONFUSIONAL STATE [None]
  - GASTROINTESTINAL PAIN [None]
  - HYPONATRAEMIA [None]
